FAERS Safety Report 4970524-7 (Version None)
Quarter: 2006Q2

REPORT INFORMATION
  Report Type: 
  Country: None (occurrence: None)
  Receive Date: 20060411
  Receipt Date: 20060411
  Transmission Date: 20061013
  Serious: Yes (Life-Threatening, Hospitalization, Disabling, Other)
  Sender: FDA-Public Use
  Company Number: None

PATIENT
  Sex: Female
  Weight: 83.9154 kg

DRUGS (2)
  1. NUVARING [Suspect]
     Indication: OVARIAN CYST
     Dosage: ONE RING ONE PER CYCLE VAG
     Route: 067
     Dates: start: 20041001, end: 20051230
  2. NUVARING [Suspect]
     Indication: PREMENSTRUAL SYNDROME
     Dosage: ONE RING ONE PER CYCLE VAG
     Route: 067
     Dates: start: 20041001, end: 20051230

REACTIONS (2)
  - PULMONARY EMBOLISM [None]
  - THROMBOSIS [None]
